FAERS Safety Report 11403939 (Version 2)
Quarter: 2015Q3

REPORT INFORMATION
  Report Type: Report from Study
  Country: JP (occurrence: JP)
  Receive Date: 20150821
  Receipt Date: 20150821
  Transmission Date: 20151125
  Serious: Yes (Hospitalization)
  Sender: FDA-Public Use
  Company Number: JP-XENOPORT, INC.-2015JP005852

PATIENT
  Age: 67 Year
  Sex: Male

DRUGS (8)
  1. CLONAZEPAM. [Concomitant]
     Active Substance: CLONAZEPAM
     Indication: DEPRESSION
     Dosage: UNK
     Route: 048
     Dates: start: 20140607, end: 20140608
  2. AMLODIPINE [Concomitant]
     Active Substance: AMLODIPINE BESYLATE
     Dosage: PER ORAL NOS
     Route: 048
  3. REGNITE [Suspect]
     Active Substance: GABAPENTIN ENACARBIL
     Indication: RESTLESS LEGS SYNDROME
     Dosage: 600 MG, ONCE DAILY
     Route: 048
     Dates: start: 20140607
  4. MAGNESIUM OXIDE HEAVY [Concomitant]
     Active Substance: MAGNESIUM OXIDE
     Dosage: PER ORAL NOS
     Route: 048
     Dates: start: 20140609
  5. BISOPROLOL FUMARATE. [Concomitant]
     Active Substance: BISOPROLOL FUMARATE
     Dosage: PER ORAL NOS
     Route: 048
  6. MOSAPRIDE CITRATE [Concomitant]
     Active Substance: MOSAPRIDE CITRATE
     Dosage: PER ORAL NOS
     Route: 048
     Dates: start: 20140607, end: 20140616
  7. VALPROIC ACID. [Concomitant]
     Active Substance: VALPROIC ACID
     Indication: DEPRESSION
     Dosage: PER ORAL NOS
     Route: 048
     Dates: start: 20141112, end: 20150421
  8. DULOXETINE. [Concomitant]
     Active Substance: DULOXETINE
     Dosage: PER ORAL NOS
     Route: 048
     Dates: start: 20140607, end: 20140608

REACTIONS (2)
  - Anxiety [Unknown]
  - Depression [Recovering/Resolving]

NARRATIVE: CASE EVENT DATE: 20140618
